FAERS Safety Report 7605839-7 (Version None)
Quarter: 2011Q3

REPORT INFORMATION
  Report Type: 
  Country: None (occurrence: None)
  Receive Date: 20110705
  Receipt Date: 20110621
  Transmission Date: 20111222
  Serious: Yes (Other)
  Sender: FDA-Public Use
  Company Number: 2011-1842

PATIENT
  Age: 62 Year
  Sex: Female
  Weight: 92.9 kg

DRUGS (29)
  1. MULTIVITAMIN (MULTIVITAMIN /00831701/) [Concomitant]
  2. NORTRIPTYLINE (NORTRIPTYLINE) [Concomitant]
  3. VITMAIN B COMPLEX (B-KOMPLEX) [Concomitant]
  4. SOMATULINE DEPOT [Suspect]
     Indication: CARCINOID SYNDROME
     Dosage: 20 MG (20 MG, 1 IN 2 WK), SUBCUTANEOUS
     Route: 058
     Dates: start: 20101025
  5. SOMATULINE DEPOT [Suspect]
     Indication: CARCINOID SYNDROME
     Dosage: 20 MG (20 MG, 1 IN 2 WK), SUBCUTANEOUS
     Route: 058
     Dates: start: 20100101
  6. NOVOLIN N [Concomitant]
  7. METFORMIN HCL (METFORMIN HYDROCHLORIDE) [Concomitant]
  8. NOVOLOG [Concomitant]
  9. FAMOTIDINE [Concomitant]
  10. COZAAR [Concomitant]
  11. ZYRTEC [Concomitant]
  12. LOSARTAN POTASSIUM [Concomitant]
  13. CALCIUM CITRATE (CALCIUM CITRATE) [Concomitant]
  14. MAGNESIUM (MAGNESIUM) [Concomitant]
  15. VITAMIN E [Concomitant]
  16. LEVOTHYROID (LEVOTHYROXINE SODIIUM) [Concomitant]
  17. SIMVASTATIN [Concomitant]
  18. VITAMIN D [Concomitant]
  19. ASPIRIN [Concomitant]
  20. ASCORBIC ACID [Concomitant]
  21. OMEGA-3-ACID ETHYL ESTERS (LOVAZA) [Concomitant]
  22. PANKREASE (PANCREATIN) [Concomitant]
  23. ALLEGRA [Concomitant]
  24. LOMOTIL [Concomitant]
  25. VITAMIN B-100 (B-KOMPLEX) [Concomitant]
  26. NOVOLIN R [Concomitant]
  27. AMLODIPINE [Concomitant]
  28. VITAMIN B12 [Concomitant]
  29. BENADRYL [Concomitant]

REACTIONS (15)
  - PALPITATIONS [None]
  - ARTHRITIS [None]
  - FLUSHING [None]
  - INSOMNIA [None]
  - SCAR [None]
  - PRURITUS [None]
  - INJECTION SITE MASS [None]
  - TENDERNESS [None]
  - NIGHT SWEATS [None]
  - HEADACHE [None]
  - BURSITIS [None]
  - FATIGUE [None]
  - TYPE 2 DIABETES MELLITUS [None]
  - DIARRHOEA [None]
  - TENDONITIS [None]
